FAERS Safety Report 9552988 (Version 1)
Quarter: 2013Q3

REPORT INFORMATION
  Report Type: Spontaneous
  Country: US (occurrence: US)
  Receive Date: 20130925
  Receipt Date: 20130925
  Transmission Date: 20140515
  Serious: Yes (Hospitalization)
  Sender: FDA-Public Use
  Company Number: US-ASTRAZENECA-2013SE69799

PATIENT
  Age: 66 Year
  Sex: Female
  Weight: 72.6 kg

DRUGS (12)
  1. METOPROLOL SUCCINATE [Suspect]
     Indication: HYPERTENSION
     Route: 048
  2. METOPROLOL SUCCINATE [Suspect]
     Indication: HYPERTENSION
     Route: 048
     Dates: start: 20130827
  3. CRESTOR [Suspect]
     Indication: BLOOD CHOLESTEROL ABNORMAL
     Route: 048
     Dates: start: 2012
  4. LIPITOR [Suspect]
  5. OTHER STATINS [Suspect]
  6. LEVOTHYROXINE [Concomitant]
     Indication: THYROID DISORDER
     Route: 048
  7. GABAPENTIN [Concomitant]
     Indication: PAIN
     Dosage: 300 MG, 1 IN THE MORNING AND 2 OR 3 AT NIGHT
     Route: 048
     Dates: start: 20130105
  8. ESTRADIOL [Concomitant]
     Indication: HOT FLUSH
     Route: 048
     Dates: start: 2005
  9. TRIAMTERENE [Concomitant]
     Indication: DIURETIC THERAPY
  10. CLOPIDOGREL [Concomitant]
     Indication: STENT PLACEMENT
     Route: 048
     Dates: start: 20130105
  11. ASPRIN [Concomitant]
     Indication: STENT PLACEMENT
     Route: 048
     Dates: start: 20130105
  12. UNSPECIFIED DIURETIC [Concomitant]

REACTIONS (11)
  - Arterial occlusive disease [Recovered/Resolved]
  - Cough [Recovered/Resolved]
  - Hypertension [Recovered/Resolved]
  - Blood triglycerides abnormal [Not Recovered/Not Resolved]
  - Blood test abnormal [Not Recovered/Not Resolved]
  - Blood cholesterol abnormal [Not Recovered/Not Resolved]
  - Arthropathy [Not Recovered/Not Resolved]
  - Pain [Not Recovered/Not Resolved]
  - Hypothyroidism [Unknown]
  - Blood triglycerides increased [Not Recovered/Not Resolved]
  - Muscle spasms [Not Recovered/Not Resolved]
